FAERS Safety Report 10208813 (Version 4)
Quarter: 2014Q3

REPORT INFORMATION
  Report Type: Report from Study
  Country: US (occurrence: US)
  Receive Date: 20140530
  Receipt Date: 20140724
  Transmission Date: 20150326
  Serious: Yes (Life-Threatening, Hospitalization)
  Sender: FDA-Public Use
  Company Number: US-MERCK-1405USA015540

PATIENT
  Age: 34 Year
  Sex: Female
  Weight: 104.1 kg

DRUGS (2)
  1. MK-1775 [Suspect]
     Active Substance: INVESTIGATIONAL PRODUCT
     Indication: GLIOBLASTOMA MULTIFORME
     Dosage: 100 MG ON DAYS 1-5 QWEEK FOR 6 WEEKS,CYCLE:1,(INITIATION (CYCLE=10 WEEKS))
     Route: 048
     Dates: start: 20140331, end: 20140509
  2. TEMOZOLOMIDE [Suspect]
     Active Substance: TEMOZOLOMIDE
     Indication: GLIOBLASTOMA MULTIFORME
     Dosage: 75 MG/M2, QD FOR 6 WEEKS, CYCLE 1, (INITIATION (CYCLE=10 WEEKS)
     Route: 048
     Dates: start: 20140331, end: 20140512

REACTIONS (2)
  - Embolism [Recovering/Resolving]
  - Brain oedema [Recovering/Resolving]

NARRATIVE: CASE EVENT DATE: 20140526
